FAERS Safety Report 9672360 (Version 2)
Quarter: 2013Q4

REPORT INFORMATION
  Report Type: Report from Study
  Country: JP (occurrence: JP)
  Receive Date: 20131106
  Receipt Date: 20131114
  Transmission Date: 20140711
  Serious: Yes (Death)
  Sender: FDA-Public Use
  Company Number: JP-PFIZER INC-2013313184

PATIENT
  Age: 35 Year
  Sex: Female
  Weight: 55.2 kg

DRUGS (10)
  1. XALKORI [Suspect]
     Indication: NON-SMALL CELL LUNG CANCER
     Dosage: 250 MG, 2X/DAY
     Route: 048
     Dates: start: 20130323, end: 20130512
  2. XALKORI [Suspect]
     Dosage: 250 MG, 2X/DAY
     Route: 048
     Dates: start: 20130521
  3. LOXOPROFEN [Concomitant]
     Dosage: 60 MG, 3X/DAY
     Route: 048
     Dates: start: 20121106
  4. TEPRENONE [Concomitant]
     Dosage: 50 MG, 3X/DAY
     Route: 048
     Dates: start: 20121106
  5. NEXIUM [Concomitant]
     Dosage: 20 MG, 1X/DAY
     Route: 048
     Dates: start: 20121123
  6. SULPIRIDE [Concomitant]
     Dosage: 50 MG, 3X/DAY
     Route: 048
     Dates: start: 20130329
  7. MAGNESIUM OXIDE [Concomitant]
     Dosage: 0.67 G, 3X/DAY
     Route: 048
     Dates: start: 20121028
  8. FENTOS TAPE [Concomitant]
     Dosage: 2 MG, 1X/DAY
     Route: 062
     Dates: start: 20130104
  9. CALCIUM LACTATE [Concomitant]
     Dosage: 500 MG, 2X/DAY
     Route: 048
     Dates: start: 20130410
  10. ZOMETA [Concomitant]
     Dosage: 4 MG, MONTHLY
     Dates: start: 20121122

REACTIONS (2)
  - Disease progression [Fatal]
  - Non-small cell lung cancer [Fatal]
